FAERS Safety Report 8876106 (Version 2)
Quarter: 2012Q4

REPORT INFORMATION
  Report Type: 
  Country: GB (occurrence: IL)
  Receive Date: 20121023
  Receipt Date: 20121203
  Transmission Date: 20130627
  Serious: Yes (Life-Threatening, Hospitalization, Other)
  Sender: FDA-Public Use
  Company Number: GB-TARO-2012P1061175

PATIENT
  Age: 58 Year
  Sex: Male
  Weight: 76 kg

DRUGS (16)
  1. WARFARIN SODIUM [Suspect]
     Route: 048
     Dates: start: 20120430, end: 20120507
  2. CIPROFIBRATE [Suspect]
     Dates: end: 20120507
  3. METHOXY POLYETHYLENE GLYCOL-EPOETIN BETA [Concomitant]
     Dates: start: 20110117
  4. ALFACALCIDOL [Concomitant]
  5. ASPIRIN [Concomitant]
  6. PREGABALIN [Concomitant]
  7. OMEPRADEX (OMEPRAZOLE) [Concomitant]
  8. VITAMIN C (ASCORBIC ACID) [Concomitant]
  9. NO DRUG NAME [Concomitant]
  10. INSULIN [Concomitant]
  11. INSULIN GLULISINE [Concomitant]
  12. CLOFIBRATE [Concomitant]
  13. ATORVASTATIN CALCIUM [Concomitant]
  14. ENALAPRIL MALEATE [Concomitant]
  15. CLOPIDOGREL (CLOPIDOGREL BISULFATE) [Concomitant]
     Dates: start: 20120418
  16. LANTUS (INSULIN GLARGINE) [Concomitant]

REACTIONS (5)
  - Prothrombin time prolonged [Recovered/Resolved]
  - Drug interaction [Recovered/Resolved]
  - International normalised ratio increased [Recovered/Resolved]
  - Hepatocellular injury [Recovering/Resolving]
  - Hypercoagulation [Recovered/Resolved]
